FAERS Safety Report 7342057-4 (Version None)
Quarter: 2011Q1

REPORT INFORMATION
  Report Type: 
  Country: None (occurrence: None)
  Receive Date: 20110309
  Receipt Date: 20110228
  Transmission Date: 20110831
  Serious: Yes (Hospitalization)
  Sender: FDA-Public Use
  Company Number: FR-GENENTECH-283403

PATIENT
  Sex: Female
  Weight: 52 kg

DRUGS (16)
  1. BLINDED RITUXIMAB [Suspect]
     Indication: DIFFUSE LARGE B-CELL LYMPHOMA
     Dosage: UNK MG, Q3W
     Route: 042
     Dates: start: 20090109
  2. BLINDED BEVACIZUMAB [Suspect]
     Indication: DIFFUSE LARGE B-CELL LYMPHOMA
     Dosage: UNK MG, Q3W
     Route: 042
     Dates: start: 20090109
  3. BLINDED DOXORUBICIN [Suspect]
     Indication: DIFFUSE LARGE B-CELL LYMPHOMA
     Dosage: UNK MG, Q3W
     Route: 042
     Dates: start: 20090109
  4. BLINDED VINCRISTINE [Suspect]
     Indication: DIFFUSE LARGE B-CELL LYMPHOMA
     Dosage: UNK MG, Q3W
     Route: 042
     Dates: start: 20090109
  5. LOGIMAX [Concomitant]
     Indication: PRODUCT USED FOR UNKNOWN INDICATION
     Dosage: UNK
     Dates: start: 19810101
  6. DUPHALAC [Concomitant]
     Indication: PRODUCT USED FOR UNKNOWN INDICATION
     Dosage: UNK
     Dates: start: 20090503, end: 20090503
  7. BLINDED PLACEBO [Suspect]
     Indication: DIFFUSE LARGE B-CELL LYMPHOMA
     Dosage: UNK MG, Q3W
     Route: 042
     Dates: start: 20090109
  8. RITUXAN [Suspect]
     Indication: DIFFUSE LARGE B-CELL LYMPHOMA
     Dosage: 570 MG, Q21D
     Route: 042
     Dates: start: 20090110
  9. DOXORUBICINE [Suspect]
     Indication: DIFFUSE LARGE B-CELL LYMPHOMA
     Dosage: 75 MG, Q21D
     Dates: start: 20090110
  10. CYCLOPHOSPHAMIDE [Suspect]
     Indication: DIFFUSE LARGE B-CELL LYMPHOMA
     Dosage: UNK MG, Q3W
     Route: 042
     Dates: start: 20090109
  11. PREDNISONE TAB [Suspect]
     Indication: DIFFUSE LARGE B-CELL LYMPHOMA
     Dosage: UNK MG, Q3W
     Route: 042
     Dates: start: 20090109
  12. PREDNISONE [Suspect]
     Indication: DIFFUSE LARGE B-CELL LYMPHOMA
     Dosage: 60 MG, Q21D
     Dates: start: 20090110
  13. NORMACOL (UNITED KINGDOM) [Concomitant]
     Indication: PRODUCT USED FOR UNKNOWN INDICATION
     Dosage: UNK
     Dates: start: 20090501, end: 20090501
  14. CHONDRON [Concomitant]
     Indication: PRODUCT USED FOR UNKNOWN INDICATION
  15. VINCRISTINE [Suspect]
     Indication: DIFFUSE LARGE B-CELL LYMPHOMA
     Dosage: 2 MG, Q21D
     Route: 042
     Dates: start: 20090110
  16. CYCLOPHOSPHAMIDE [Suspect]
     Indication: DIFFUSE LARGE B-CELL LYMPHOMA
     Dosage: 1150 MG, Q21D
     Route: 042
     Dates: start: 20090110

REACTIONS (1)
  - MUCOSAL INFLAMMATION [None]
